FAERS Safety Report 4849245-7 (Version None)
Quarter: 2005Q4

REPORT INFORMATION
  Report Type: 
  Country: None (occurrence: None)
  Receive Date: 20051207
  Receipt Date: 20051128
  Transmission Date: 20060501
  Serious: Yes (Death, Hospitalization)
  Sender: FDA-Public Use
  Company Number: 194004

PATIENT
  Age: 41 Year
  Sex: Male

DRUGS (8)
  1. AVONEX [Suspect]
     Indication: MULTIPLE SCLEROSIS
     Dosage: 30 UG;QW;IM
     Route: 030
     Dates: start: 20020101
  2. AVONEX [Suspect]
     Indication: MULTIPLE SCLEROSIS
     Dosage: 30 UG;QW;IM
     Route: 030
  3. NOVANTRONE [Concomitant]
  4. ARICEPT [Concomitant]
  5. LEXAPRO [Concomitant]
  6. PROVIGIL [Concomitant]
  7. LIPITOR [Concomitant]
  8. LEVOXYL [Concomitant]

REACTIONS (1)
  - MYOCARDIAL INFARCTION [None]
